FAERS Safety Report 8957402 (Version 1)
Quarter: 2012Q4

REPORT INFORMATION
  Report Type: 
  Country: SE (occurrence: SE)
  Receive Date: 20121211
  Receipt Date: 20121211
  Transmission Date: 20130627
  Serious: Yes (Hospitalization)
  Sender: FDA-Public Use
  Company Number: SE-ROCHE-1167371

PATIENT
  Sex: Male

DRUGS (2)
  1. ACTILYSE [Suspect]
     Indication: PULMONARY EMBOLISM
     Route: 065
  2. WARFARIN [Concomitant]

REACTIONS (2)
  - Chest pain [Unknown]
  - Urticaria [Unknown]
